FAERS Safety Report 4827825-2 (Version None)
Quarter: 2005Q4

REPORT INFORMATION
  Report Type: 
  Country: None (occurrence: None)
  Receive Date: 20051114
  Receipt Date: 20051114
  Transmission Date: 20060501
  Serious: Yes (Other)
  Sender: FDA-Public Use
  Company Number: None

PATIENT
  Age: 20 Year
  Sex: Female
  Weight: 63.9572 kg

DRUGS (1)
  1. LARIAM [Suspect]
     Indication: MALARIA PROPHYLAXIS
     Dosage: 1 PILL PER WEEK 11 WEEKS PO
     Route: 048
     Dates: start: 20000509, end: 20000901

REACTIONS (13)
  - ABDOMINAL PAIN UPPER [None]
  - DISTURBANCE IN ATTENTION [None]
  - FATIGUE [None]
  - FEELING ABNORMAL [None]
  - GENERALISED ANXIETY DISORDER [None]
  - IMPAIRED DRIVING ABILITY [None]
  - NERVOUSNESS [None]
  - PANIC ATTACK [None]
  - RAYNAUD'S PHENOMENON [None]
  - SUICIDAL IDEATION [None]
  - THINKING ABNORMAL [None]
  - TREMOR [None]
  - VISUAL DISTURBANCE [None]
